FAERS Safety Report 16341249 (Version 1)
Quarter: 2019Q2

REPORT INFORMATION
  Report Type: Spontaneous
  Country: CN (occurrence: CN)
  Receive Date: 20190522
  Receipt Date: 20190522
  Transmission Date: 20190711
  Serious: Yes (Hospitalization, Other)
  Sender: FDA-Public Use
  Company Number: CN-ROCHE-2320090

PATIENT
  Age: 53 Year
  Sex: Male

DRUGS (25)
  1. CALCIUM FOLINATE [Concomitant]
     Active Substance: LEUCOVORIN CALCIUM
     Indication: METASTASES TO LYMPH NODES
  2. THALIDOMIDE [Concomitant]
     Active Substance: THALIDOMIDE
     Indication: RECTAL CANCER
     Route: 048
     Dates: end: 20160926
  3. ENDOSTAR [Concomitant]
     Active Substance: ENDOSTATIN
     Dosage: CHEST INJECTION
     Route: 065
     Dates: start: 20181016
  4. OXALIPLATIN. [Concomitant]
     Active Substance: OXALIPLATIN
     Indication: METASTASES TO LYMPH NODES
  5. IRINOTECAN [Concomitant]
     Active Substance: IRINOTECAN
     Indication: RECTAL CANCER
     Dosage: DAY1
     Route: 041
     Dates: start: 20160620, end: 20160926
  6. IRINOTECAN [Concomitant]
     Active Substance: IRINOTECAN
     Indication: METASTASES TO LYMPH NODES
  7. CALCIUM FOLINATE [Concomitant]
     Active Substance: LEUCOVORIN CALCIUM
     Indication: RECTAL CANCER
     Dosage: DAY2 DAY3
     Route: 041
     Dates: start: 20160620, end: 20160926
  8. PEMETREXED. [Concomitant]
     Active Substance: PEMETREXED
     Indication: RECTAL CANCER
     Dosage: DAY1
     Route: 041
     Dates: start: 20161105, end: 20170119
  9. RALTITREXED [Concomitant]
     Active Substance: RALTITREXED
     Route: 065
  10. GIMERACIL [Concomitant]
     Active Substance: GIMERACIL
     Route: 065
  11. PEMETREXED. [Concomitant]
     Active Substance: PEMETREXED
     Indication: METASTASES TO LYMPH NODES
  12. TEGAFUR [Concomitant]
     Active Substance: TEGAFUR
     Route: 048
     Dates: start: 20161105, end: 20170119
  13. TEGAFUR [Concomitant]
     Active Substance: TEGAFUR
     Route: 065
  14. OTERACIL POTASSIUM [Concomitant]
     Active Substance: OTERACIL POTASSIUM
     Route: 065
  15. DONAFENIB [Concomitant]
  16. OXALIPLATIN. [Concomitant]
     Active Substance: OXALIPLATIN
     Indication: RECTAL CANCER
     Dosage: DAY1
     Route: 065
     Dates: start: 20150814, end: 20171207
  17. FLUOROURACIL. [Concomitant]
     Active Substance: FLUOROURACIL
     Indication: RECTAL CANCER
     Dosage: DAY2 DAY3
     Route: 041
     Dates: start: 20160621
  18. GIMERACIL [Concomitant]
     Active Substance: GIMERACIL
     Route: 048
     Dates: start: 20161105, end: 20170119
  19. XELODA [Suspect]
     Active Substance: CAPECITABINE
     Indication: METASTASES TO LYMPH NODES
  20. FLUOROURACIL. [Concomitant]
     Active Substance: FLUOROURACIL
     Indication: METASTASES TO LYMPH NODES
     Dosage: DAY2; 44 HOURS PUMPING IN
     Route: 065
     Dates: start: 20160621
  21. THALIDOMIDE [Concomitant]
     Active Substance: THALIDOMIDE
     Indication: METASTASES TO LYMPH NODES
     Route: 065
     Dates: end: 201612
  22. ZOLEDRONATE [Concomitant]
     Active Substance: ZOLEDRONIC ACID
     Dosage: INJECTION
     Route: 065
  23. XELODA [Suspect]
     Active Substance: CAPECITABINE
     Indication: RECTAL CANCER
     Dosage: 1.5G IN THE MORNING 2G IN THE EVENING
     Route: 048
     Dates: start: 20150814, end: 20171207
  24. FLUOROURACIL. [Concomitant]
     Active Substance: FLUOROURACIL
     Route: 041
  25. OTERACIL POTASSIUM [Concomitant]
     Active Substance: OTERACIL POTASSIUM
     Route: 048
     Dates: start: 20161105, end: 20170119

REACTIONS (3)
  - Bone marrow failure [Unknown]
  - Intestinal obstruction [Recovered/Resolved]
  - Pulmonary embolism [Recovering/Resolving]

NARRATIVE: CASE EVENT DATE: 201702
